FAERS Safety Report 10146567 (Version 1)
Quarter: 2014Q2

REPORT INFORMATION
  Report Type: Spontaneous
  Country: US (occurrence: None)
  Receive Date: 20140430
  Receipt Date: 20140430
  Transmission Date: 20141212
  Serious: Yes (Hospitalization)
  Sender: FDA-Public Use
  Company Number: None

PATIENT
  Age: 64 Year
  Sex: Female

DRUGS (14)
  1. WARFARIN [Suspect]
     Route: 048
     Dates: end: 20140117
  2. KETOCONAZOLE [Concomitant]
  3. LINEZOLID [Concomitant]
  4. METRONIDAZOLE [Concomitant]
  5. NYSTATIN [Concomitant]
  6. ASA [Concomitant]
  7. ATORVASTATIN [Concomitant]
  8. CALCIUM CARBONATE [Concomitant]
  9. LEVOTHYROXINE [Concomitant]
  10. METOPROLOL [Concomitant]
  11. FUROSEMIDE [Concomitant]
  12. LORAZEPAM [Concomitant]
  13. OXYCODONE [Concomitant]
  14. RANITIDINE [Concomitant]

REACTIONS (5)
  - Leukocytosis [None]
  - Bacterial test positive [None]
  - Haemoglobin decreased [None]
  - Pelvic haematoma [None]
  - Urinary tract infection enterococcal [None]
